FAERS Safety Report 4458825-2 (Version None)
Quarter: 2004Q3

REPORT INFORMATION
  Report Type: 
  Country: None (occurrence: None)
  Receive Date: 20040921
  Receipt Date: 20040921
  Transmission Date: 20050211
  Serious: Yes (Other)
  Sender: FDA-Public Use
  Company Number: None

PATIENT

DRUGS (1)
  1. GAS RELIEF DROPS 40 MG/0.6 ML RUGBY [Suspect]
     Indication: FLATULENCE
     Dosage: 80 MG ONCE ORAL
     Route: 048
     Dates: start: 20040822, end: 20040822

REACTIONS (1)
  - MEDICATION ERROR [None]
